FAERS Safety Report 5955666-1 (Version None)
Quarter: 2008Q4

REPORT INFORMATION
  Report Type: 
  Country: None (occurrence: None)
  Receive Date: 20081112
  Receipt Date: 20081028
  Transmission Date: 20090506
  Serious: Yes (Death, Other)
  Sender: FDA-Public Use
  Company Number: MC200800510

PATIENT
  Sex: 0

DRUGS (1)
  1. ANGIOMAX [Suspect]
     Indication: PERCUTANEOUS CORONARY INTERVENTION
     Dosage: 1 MG/KG, BOLUS, INTRAVENOUS; 2.5 MG/KG, INTRAVENOUS
     Route: 042

REACTIONS (2)
  - HEPATIC FAILURE [None]
  - OVERDOSE [None]
